FAERS Safety Report 17036898 (Version 1)
Quarter: 2019Q4

REPORT INFORMATION
  Report Type: Other
  Country: FR (occurrence: FR)
  Receive Date: 20191115
  Receipt Date: 20191115
  Transmission Date: 20200122
  Serious: Yes (Hospitalization)
  Sender: FDA-Public Use
  Company Number: FR-DENTSPLY-2019SCDP000620

PATIENT
  Age: 51 Year
  Sex: Female
  Weight: 66 kg

DRUGS (2)
  1. XYLOCAINE WITH ADRENALINE (EPINEPHRINE) [Suspect]
     Active Substance: EPINEPHRINE BITARTRATE\LIDOCAINE HYDROCHLORIDE
     Indication: ANAESTHESIA
     Dosage: TOTAL
     Route: 042
     Dates: start: 20191017, end: 20191017
  2. NAROPEINE [Suspect]
     Active Substance: ROPIVACAINE HYDROCHLORIDE
     Indication: ANAESTHESIA
     Dosage: 100 MILLIGRAM, TOTAL
     Route: 042
     Dates: start: 20191017, end: 20191017

REACTIONS (4)
  - Loss of consciousness [Recovered/Resolved]
  - Hypotension [Recovered/Resolved]
  - Dysgeusia [Recovered/Resolved]
  - Tinnitus [Recovered/Resolved]

NARRATIVE: CASE EVENT DATE: 20191017
